FAERS Safety Report 8042854-6 (Version None)
Quarter: 2012Q1

REPORT INFORMATION
  Report Type: 
  Country: None (occurrence: None)
  Receive Date: 20120112
  Receipt Date: 20111205
  Transmission Date: 20120608
  Serious: Yes (Other)
  Sender: FDA-Public Use
  Company Number: US-PFIZER INC-2011059958

PATIENT
  Sex: Female
  Weight: 79.365 kg

DRUGS (1)
  1. XALATAN [Suspect]
     Indication: INTRAOCULAR PRESSURE INCREASED
     Dosage: 1 GTT IN THE LEFT EYE, 1X/DAY
     Route: 047
     Dates: start: 20090101

REACTIONS (2)
  - VISUAL IMPAIRMENT [None]
  - INTRAOCULAR PRESSURE INCREASED [None]
